FAERS Safety Report 26139618 (Version 1)
Quarter: 2025Q4

REPORT INFORMATION
  Report Type: Spontaneous
  Country: US (occurrence: None)
  Receive Date: 20251209
  Receipt Date: 20251209
  Transmission Date: 20260118
  Serious: Yes (Death)
  Sender: FDA-CTU
  Company Number: None

PATIENT
  Age: 75 Year
  Sex: Male

DRUGS (18)
  1. REVLIMID [Suspect]
     Active Substance: LENALIDOMIDE
     Indication: Plasma cell myeloma
     Dosage: OTHER FREQUENCY : DAILY FOR 21 DAYS;
     Route: 048
     Dates: start: 20241228
  2. DARZALEX 100MG/5ML INJ [Concomitant]
  3. DECADRON 4MG TABLETS [Concomitant]
  4. MOUNJARO 10MG/0.5ML INJ (4 PENS) [Concomitant]
  5. FLUTICASONE 50MCG NASAL SP [Concomitant]
  6. ALBUTEROL HFA INH [Concomitant]
  7. ALLOPURINOL 100MG TABLETS [Concomitant]
  8. ASPIRIN [Concomitant]
     Active Substance: ASPIRIN
  9. ATORVASTATIN [Concomitant]
     Active Substance: ATORVASTATIN
  10. BRED ELLIPTA 100-25MCG ORAL INH [Concomitant]
  11. CLOTRIMAZOLE 1% CREAM (OTC) 14GM [Concomitant]
  12. FISH OIL 1200MG CAPSULES [Concomitant]
  13. GABAPENTIN [Concomitant]
     Active Substance: GABAPENTIN
  14. IPRATROPIUM 0.06% NAS SP 15ML [Concomitant]
  15. VITAMINS [Concomitant]
     Active Substance: VITAMINS
  16. SINGULAIR 10MG TABLETS [Concomitant]
  17. TOPIRAMATE [Concomitant]
     Active Substance: TOPIRAMATE
  18. VALACYCLOVIR HYDROCHLORIDE [Concomitant]
     Active Substance: VALACYCLOVIR HYDROCHLORIDE

REACTIONS (1)
  - Death [None]
